FAERS Safety Report 26043487 (Version 1)
Quarter: 2025Q4

REPORT INFORMATION
  Report Type: Spontaneous
  Country: US (occurrence: US)
  Receive Date: 20251113
  Receipt Date: 20251113
  Transmission Date: 20260117
  Serious: Yes (Other)
  Sender: JOHNSON AND JOHNSON
  Company Number: US-JNJFOC-20251147788

PATIENT
  Sex: Male

DRUGS (2)
  1. RYBREVANT [Suspect]
     Active Substance: AMIVANTAMAB-VMJW
     Indication: Product used for unknown indication
  2. LAZCLUZE [Suspect]
     Active Substance: LAZERTINIB
     Indication: Product used for unknown indication
     Route: 048

REACTIONS (5)
  - Atrial fibrillation [Unknown]
  - Cough [Unknown]
  - Chest pain [Unknown]
  - Flushing [Unknown]
  - Ocular hyperaemia [Unknown]
